FAERS Safety Report 25710792 (Version 2)
Quarter: 2025Q4

REPORT INFORMATION
  Report Type: Spontaneous
  Country: US (occurrence: US)
  Receive Date: 20250821
  Receipt Date: 20251014
  Transmission Date: 20260117
  Serious: No
  Sender: SANOFI AVENTIS
  Company Number: US-SA-2025SA247119

PATIENT
  Age: 66 Year
  Sex: Male

DRUGS (2)
  1. DUPIXENT [Suspect]
     Active Substance: DUPILUMAB
     Indication: Dermatitis atopic
     Dosage: 300MG, QOW
     Route: 058
     Dates: start: 2023, end: 202409
  2. DUPIXENT [Suspect]
     Active Substance: DUPILUMAB
     Dosage: 300 MG, QOW
     Route: 058
     Dates: start: 202501

REACTIONS (11)
  - Eczema [Recovering/Resolving]
  - Rebound effect [Recovering/Resolving]
  - Product dose omission issue [Recovering/Resolving]
  - Pruritus [Not Recovered/Not Resolved]
  - Skin haemorrhage [Recovering/Resolving]
  - Rash [Recovering/Resolving]
  - Skin ulcer [Not Recovered/Not Resolved]
  - Scratch [Unknown]
  - Scab [Not Recovered/Not Resolved]
  - Incorrect dose administered [Unknown]
  - Skin lesion [Unknown]

NARRATIVE: CASE EVENT DATE: 20240901
